FAERS Safety Report 23040365 (Version 1)
Quarter: 2023Q4

REPORT INFORMATION
  Report Type: Spontaneous
  Country: US (occurrence: US)
  Receive Date: 20231006
  Receipt Date: 20231006
  Transmission Date: 20240110
  Serious: Yes (Other)
  Sender: FDA-Public Use
  Company Number: US-PFIZER INC-202300312413

PATIENT
  Age: 70 Year
  Sex: Female

DRUGS (2)
  1. METHOTREXATE SODIUM [Suspect]
     Active Substance: METHOTREXATE SODIUM
     Indication: Rheumatoid arthritis
     Dosage: UNK
  2. METHOTREXATE SODIUM [Suspect]
     Active Substance: METHOTREXATE SODIUM
     Indication: Breast cancer

REACTIONS (7)
  - Hip fracture [Unknown]
  - Femur fracture [Unknown]
  - Foot fracture [Unknown]
  - Ankle fracture [Unknown]
  - Rib fracture [Unknown]
  - Osteoporosis [Unknown]
  - Arthralgia [Unknown]
